FAERS Safety Report 6550074-7 (Version None)
Quarter: 2010Q1

REPORT INFORMATION
  Report Type: 
  Country: None (occurrence: None)
  Receive Date: 20100125
  Receipt Date: 20100115
  Transmission Date: 20100710
  Serious: Yes (Hospitalization)
  Sender: FDA-Public Use
  Company Number: US-ASTRAZENECA-2010SE01898

PATIENT
  Sex: Female
  Weight: 63.5 kg

DRUGS (2)
  1. SEROQUEL XR [Suspect]
     Indication: NERVOUSNESS
     Route: 048
     Dates: start: 20080101
  2. ATIVAN [Concomitant]
     Indication: ANXIETY
     Route: 058

REACTIONS (2)
  - BLOOD POTASSIUM DECREASED [None]
  - CONVULSION [None]
